FAERS Safety Report 7221529-7 (Version None)
Quarter: 2011Q1

REPORT INFORMATION
  Report Type: 
  Country: None (occurrence: None)
  Receive Date: 20110112
  Receipt Date: 20110106
  Transmission Date: 20110831
  Serious: Yes (Hospitalization)
  Sender: FDA-Public Use
  Company Number: DE-ELI_LILLY_AND_COMPANY-DE201101001413

PATIENT
  Age: 60 Year
  Sex: Male
  Weight: 73.2 kg

DRUGS (16)
  1. CETUXIMAB [Suspect]
     Indication: HEAD AND NECK CANCER
     Dosage: 400 MG/M2, LOADING DOSE
     Route: 042
     Dates: start: 20101227, end: 20101227
  2. CETUXIMAB [Suspect]
     Dosage: 250 MG/M2, WEEKLY (1/W)
     Route: 042
  3. VITAMIN B-12 [Concomitant]
     Indication: PROPHYLAXIS
     Dates: start: 20101210
  4. FENTANYL CITRATE [Concomitant]
     Indication: TUMOUR PAIN
     Dates: start: 20101130
  5. OMEPRAZOLE [Concomitant]
     Indication: PROPHYLAXIS
     Dates: start: 20110103
  6. TCP [Concomitant]
     Indication: PROPHYLAXIS
     Dates: start: 20101227
  7. ONDANSETRON [Concomitant]
     Indication: VOMITING
     Dates: start: 20101229
  8. FOLIC ACID [Concomitant]
     Indication: PROPHYLAXIS
     Dates: start: 20101214
  9. ENALAPRIL MALEATE [Concomitant]
     Indication: HYPERTENSION
     Dates: start: 20070101
  10. PEMETREXED [Suspect]
     Indication: HEAD AND NECK CANCER
     Dosage: 500 MG/M2, DAY ONE EVERY 21 DAYS
     Route: 042
     Dates: start: 20101227
  11. ZOFRAN [Concomitant]
     Indication: PROPHYLAXIS
     Dates: start: 20101227
  12. NOVAMINOSULFON [Concomitant]
     Indication: TUMOUR PAIN
     Dates: start: 20101130
  13. LEVOTHYROXINE SODIUM [Concomitant]
     Indication: HYPOTHYROIDISM
     Dates: start: 20070101
  14. CISPLATIN [Suspect]
     Indication: HEAD AND NECK CANCER
     Dosage: 75 MG/M2, DAY ONE EVERY 21 DAYS
     Route: 042
     Dates: start: 20101227
  15. DEXAMETHASONE [Concomitant]
     Indication: PROPHYLAXIS
     Dates: start: 20101227
  16. DIACARD [Concomitant]
     Indication: PROPHYLAXIS
     Dates: start: 20110103

REACTIONS (1)
  - CEREBRAL INFARCTION [None]
